FAERS Safety Report 12527288 (Version 1)
Quarter: 2016Q3

REPORT INFORMATION
  Report Type: Spontaneous
  Country: US (occurrence: US)
  Receive Date: 20160705
  Receipt Date: 20160705
  Transmission Date: 20161109
  Serious: Yes (Other)
  Sender: FDA-Public Use
  Company Number: US-SA-2015SA061221

PATIENT
  Age: 59 Year
  Sex: Female

DRUGS (1)
  1. ICY HOT MEDICATED, BACK [Suspect]
     Active Substance: MENTHOL
     Dosage: PATCH
     Route: 061
     Dates: start: 20150503, end: 20150504

REACTIONS (5)
  - Skin exfoliation [Unknown]
  - Application site burn [Unknown]
  - Application site pain [Unknown]
  - Back pain [Unknown]
  - Application site discomfort [Unknown]

NARRATIVE: CASE EVENT DATE: 20150504
